FAERS Safety Report 15325210 (Version 1)
Quarter: 2018Q3

REPORT INFORMATION
  Report Type: Spontaneous
  Country: US (occurrence: US)
  Receive Date: 20180822
  Receipt Date: 20180822
  Transmission Date: 20181010
  Serious: Yes (Hospitalization)
  Sender: FDA-Public Use
  Company Number: None

PATIENT
  Age: 25 Year
  Sex: Female

DRUGS (2)
  1. CLOTRIMAZOLE. [Suspect]
     Active Substance: CLOTRIMAZOLE
     Indication: VULVOVAGINAL MYCOTIC INFECTION
     Route: 067
     Dates: start: 20180816, end: 20180817
  2. DIFLUCAN [Concomitant]
     Active Substance: FLUCONAZOLE
     Dates: start: 20180816, end: 20180817

REACTIONS (1)
  - Urticaria [None]

NARRATIVE: CASE EVENT DATE: 20180818
